FAERS Safety Report 9029627 (Version 1)
Quarter: 2013Q1

REPORT INFORMATION
  Report Type: Spontaneous
  Country: US (occurrence: US)
  Receive Date: 20130125
  Receipt Date: 20130125
  Transmission Date: 20140127
  Serious: Yes (Hospitalization)
  Sender: FDA-Public Use
  Company Number: US-SANOFI-AVENTIS-2013SA003002

PATIENT
  Sex: Male
  Weight: 96.1 kg

DRUGS (4)
  1. LANTUS SOLOSTAR [Suspect]
     Indication: TYPE 2 DIABETES MELLITUS
     Dosage: DOSE:50 UNIT(S)
     Route: 058
     Dates: start: 2010
  2. SOLOSTAR [Suspect]
     Indication: TYPE 2 DIABETES MELLITUS
     Dates: start: 2010
  3. GLUCOPHAGE [Concomitant]
  4. OPHTHALMOLOGICALS [Concomitant]
     Indication: VISUAL IMPAIRMENT

REACTIONS (6)
  - Colon cancer stage III [Unknown]
  - Anaemia [Unknown]
  - Hernia [Unknown]
  - Blood glucose increased [Unknown]
  - Glycosylated haemoglobin increased [Unknown]
  - Visual acuity reduced [Not Recovered/Not Resolved]
